FAERS Safety Report 4684328-6 (Version None)
Quarter: 2005Q2

REPORT INFORMATION
  Report Type: 
  Country: None (occurrence: None)
  Receive Date: 20050531
  Receipt Date: 20040601
  Transmission Date: 20051028
  Serious: Yes (Death, Other)
  Sender: FDA-Public Use
  Company Number: 200413947US

PATIENT
  Age: 64 Year
  Sex: Male
  Weight: 125 kg

DRUGS (15)
  1. LOVENOX [Suspect]
     Indication: AORTIC VALVE REPLACEMENT
     Dosage: 40 MG QD SC
     Route: 058
     Dates: start: 20040402, end: 20040406
  2. LOVENOX [Suspect]
     Indication: ATRIAL FIBRILLATION
     Dosage: 40 MG QD SC
     Route: 058
     Dates: start: 20040402, end: 20040406
  3. LOVENOX [Suspect]
     Indication: PROPHYLAXIS
     Dosage: 40 MG QD SC
     Route: 058
     Dates: start: 20040402, end: 20040406
  4. LOVENOX [Suspect]
     Indication: AORTIC VALVE REPLACEMENT
     Dosage: 0.5 MG/KG BID SC
     Route: 058
     Dates: start: 20040406, end: 20040412
  5. LOVENOX [Suspect]
     Indication: ATRIAL FIBRILLATION
     Dosage: 0.5 MG/KG BID SC
     Route: 058
     Dates: start: 20040406, end: 20040412
  6. LOVENOX [Suspect]
     Indication: PROPHYLAXIS
     Dosage: 0.5 MG/KG BID SC
     Route: 058
     Dates: start: 20040406, end: 20040412
  7. LOVENOX [Suspect]
     Indication: AORTIC VALVE REPLACEMENT
     Dosage: 0.75 MG/KG BID SC
     Route: 058
     Dates: start: 20040412, end: 20040417
  8. LOVENOX [Suspect]
     Indication: CARDIAC FIBRILLATION
     Dosage: 0.75 MG/KG BID SC
     Route: 058
     Dates: start: 20040412, end: 20040417
  9. LOVENOX [Suspect]
     Indication: PROPHYLAXIS
     Dosage: 0.75 MG/KG BID SC
     Route: 058
     Dates: start: 20040412, end: 20040417
  10. VANCOMYCIN [Concomitant]
  11. ALBUMIN NORMAL HUMAN SERUM (ALBUMIN) [Concomitant]
  12. PROTEIN C (COAGULATION INHIBITOR) (CEPROTIN) [Concomitant]
  13. MANNITOL [Concomitant]
  14. HEPARIN [Concomitant]
  15. LASIX [Concomitant]

REACTIONS (7)
  - ALANINE AMINOTRANSFERASE INCREASED [None]
  - ASPARTATE AMINOTRANSFERASE INCREASED [None]
  - HAEMATOCRIT DECREASED [None]
  - HAEMOGLOBIN DECREASED [None]
  - HAEMORRHAGE [None]
  - HEPATIC FUNCTION ABNORMAL [None]
  - PLATELET COUNT DECREASED [None]
